FAERS Safety Report 24805052 (Version 2)
Quarter: 2025Q1

REPORT INFORMATION
  Report Type: Spontaneous
  Country: FI (occurrence: FI)
  Receive Date: 20250103
  Receipt Date: 20250306
  Transmission Date: 20250408
  Serious: Yes (Other)
  Sender: BAYER HEALTHCARE PHARMACEUTICALS INC.
  Company Number: FI-BAYER-2024A178201

PATIENT
  Age: 33 Year
  Sex: Female

DRUGS (1)
  1. KYLEENA [Suspect]
     Active Substance: LEVONORGESTREL
     Dosage: 17.5?G/DAY
     Route: 015
     Dates: start: 20220905

REACTIONS (7)
  - Ectopic pregnancy [Recovered/Resolved]
  - Haemorrhage in pregnancy [None]
  - Intra-abdominal haemorrhage [None]
  - Amenorrhoea [None]
  - Device expulsion [None]
  - Abdominal pain lower [None]
  - Drug ineffective [None]

NARRATIVE: CASE EVENT DATE: 20241209
